FAERS Safety Report 9064923 (Version 3)
Quarter: 2013Q1

REPORT INFORMATION
  Report Type: Spontaneous
  Country: US (occurrence: US)
  Receive Date: 20130128
  Receipt Date: 20130225
  Transmission Date: 20140127
  Serious: Yes (Other)
  Sender: FDA-Public Use
  Company Number: US-JNJFOC-20130101049

PATIENT
  Age: 30 Year
  Sex: Female

DRUGS (8)
  1. REMICADE [Suspect]
     Indication: COLITIS ULCERATIVE
     Route: 042
     Dates: start: 20121107
  2. REMICADE [Suspect]
     Indication: COLITIS ULCERATIVE
     Route: 042
  3. REMICADE [Suspect]
     Indication: COLITIS ULCERATIVE
     Route: 042
     Dates: start: 20130102
  4. REMICADE [Suspect]
     Indication: COLITIS ULCERATIVE
     Route: 042
     Dates: start: 201207
  5. REMICADE [Suspect]
     Indication: COLITIS ULCERATIVE
     Route: 042
     Dates: start: 201209
  6. ZYRTEC [Suspect]
     Indication: PREMEDICATION
     Route: 065
  7. ZYRTEC [Suspect]
     Indication: PREMEDICATION
     Route: 065
     Dates: start: 20130102
  8. METHOTREXATE [Concomitant]
     Route: 065

REACTIONS (10)
  - Dyspnoea [Unknown]
  - Chest discomfort [Unknown]
  - Infusion related reaction [Unknown]
  - Chest pain [Unknown]
  - Flushing [Unknown]
  - Arthralgia [Unknown]
  - Back pain [Unknown]
  - Skin lesion [Unknown]
  - Anxiety [Unknown]
  - Drug ineffective [Unknown]
